FAERS Safety Report 17440279 (Version 2)
Quarter: 2020Q2

REPORT INFORMATION
  Report Type: Spontaneous
  Country: US (occurrence: US)
  Receive Date: 20200220
  Receipt Date: 20200403
  Transmission Date: 20200713
  Serious: No
  Sender: FDA-Public Use
  Company Number: US-PFIZER INC-2020076431

PATIENT
  Age: 65 Year
  Sex: Female
  Weight: 99.77 kg

DRUGS (1)
  1. METAXALONE. [Suspect]
     Active Substance: METAXALONE
     Indication: NECK INJURY
     Dosage: 800 MG, 4X/DAY
     Dates: start: 2004

REACTIONS (2)
  - Urine odour abnormal [Recovered/Resolved]
  - Renal disorder [Recovered/Resolved]
